FAERS Safety Report 10553422 (Version 1)
Quarter: 2014Q4

REPORT INFORMATION
  Report Type: Spontaneous
  Country: US (occurrence: None)
  Receive Date: 20141020
  Receipt Date: 20141020
  Transmission Date: 20150529
  Serious: Yes (Other)
  Sender: FDA-Public Use
  Company Number: AEGR000511

PATIENT
  Age: 44 Year
  Sex: Female
  Weight: 86.6 kg

DRUGS (15)
  1. JUXTAPID [Suspect]
     Active Substance: LOMITAPIDE MESYLATE
     Indication: TYPE IIA HYPERLIPIDAEMIA
     Route: 048
     Dates: start: 201404, end: 201405
  2. RANITIDINE [Concomitant]
     Active Substance: RANITIDINE\RANITIDINE HYDROCHLORIDE
  3. TRICOR [Concomitant]
     Active Substance: FENOFIBRATE
  4. VITAMINS [Concomitant]
     Active Substance: VITAMINS
  5. AMITRIPTYLINE [Concomitant]
     Active Substance: AMITRIPTYLINE
  6. OXYCODONE [Concomitant]
     Active Substance: OXYCODONE
  7. PLAVIX (CLOPIDOGREL BISULFATE) [Concomitant]
  8. ELAVIL [Concomitant]
     Active Substance: AMITRIPTYLINE HYDROCHLORIDE
  9. MELATONIN [Concomitant]
     Active Substance: MELATONIN
  10. RANEXA (RANOLAZINE) [Concomitant]
  11. FENTANYL. [Concomitant]
     Active Substance: FENTANYL
  12. OMEGA 3 (FISH OIL) [Concomitant]
     Active Substance: OMEGA-3 FATTY ACIDS
  13. GABAPENTIN. [Concomitant]
     Active Substance: GABAPENTIN
  14. LIPITOR [Concomitant]
     Active Substance: ATORVASTATIN CALCIUM
  15. DURAGESIC (FENTANYL) [Concomitant]

REACTIONS (12)
  - Upper respiratory tract infection [None]
  - Nasopharyngitis [None]
  - Palpitations [None]
  - Vomiting [None]
  - Headache [None]
  - Abdominal discomfort [None]
  - Heart rate increased [None]
  - Nausea [None]
  - Hypersensitivity [None]
  - Pyrexia [None]
  - Fatigue [None]
  - Abdominal pain [None]

NARRATIVE: CASE EVENT DATE: 201404
